FAERS Safety Report 24043216 (Version 1)
Quarter: 2024Q3

REPORT INFORMATION
  Report Type: Spontaneous
  Country: CO (occurrence: CO)
  Receive Date: 20240702
  Receipt Date: 20240702
  Transmission Date: 20241016
  Serious: Yes (Death)
  Sender: BOEHRINGER INGELHEIM
  Company Number: CO-BoehringerIngelheim-2024-BI-037410

PATIENT
  Sex: Male

DRUGS (1)
  1. NINTEDANIB [Suspect]
     Active Substance: NINTEDANIB
     Indication: Pulmonary fibrosis
     Dates: start: 20240401

REACTIONS (1)
  - Death [Fatal]

NARRATIVE: CASE EVENT DATE: 20240626
